FAERS Safety Report 12503195 (Version 1)
Quarter: 2016Q2

REPORT INFORMATION
  Report Type: Spontaneous
  Country: MX (occurrence: None)
  Receive Date: 20160627
  Receipt Date: 20160627
  Transmission Date: 20160815
  Serious: Yes (Life-Threatening, Hospitalization, Other)
  Sender: FDA-Public Use
  Company Number: None

PATIENT
  Age: 34 Year
  Sex: Male
  Weight: 61.24 kg

DRUGS (1)
  1. METICORTEN [Suspect]
     Active Substance: PREDNISONE
     Indication: DRUG HYPERSENSITIVITY
     Route: 048
     Dates: start: 20151002, end: 20151008

REACTIONS (9)
  - Insomnia [None]
  - Adrenocortical insufficiency acute [None]
  - Shock [None]
  - Headache [None]
  - Contraindicated drug administered [None]
  - Drug withdrawal syndrome [None]
  - Hallucination [None]
  - Hot flush [None]
  - Fatigue [None]

NARRATIVE: CASE EVENT DATE: 20151010
